FAERS Safety Report 9557377 (Version 1)
Quarter: 2013Q3

REPORT INFORMATION
  Report Type: Spontaneous
  Country: US (occurrence: None)
  Receive Date: 20130724
  Receipt Date: 20130724
  Transmission Date: 20140515
  Serious: Yes (Other)
  Sender: FDA-Public Use
  Company Number: PHEH2013US006970

PATIENT
  Age: 48 Year
  Sex: Female

DRUGS (5)
  1. GILENYA (FINGOLIMOD) CAPSULE, 0.5MG [Suspect]
     Indication: MULTIPLE SCLEROSIS
     Route: 048
     Dates: start: 20111012
  2. AMPYRA (FAMPRIDINE) TABLET, 10MG [Concomitant]
  3. PANTOPRAZOLE [Concomitant]
  4. QUINAPRIL [Concomitant]
  5. DITROPAN (OXYBUTYNIN HYDROCHLORIDE) [Concomitant]

REACTIONS (2)
  - Skin exfoliation [None]
  - Dry skin [None]
